FAERS Safety Report 13159896 (Version 9)
Quarter: 2017Q3

REPORT INFORMATION
  Report Type: Report from Study
  Country: CO (occurrence: CO)
  Receive Date: 20170127
  Receipt Date: 20170905
  Transmission Date: 20171127
  Serious: Yes (Hospitalization, Other)
  Sender: FDA-Public Use
  Company Number: PHHY2016CO040163

PATIENT
  Age: 80 Year
  Sex: Male
  Weight: 61 kg

DRUGS (15)
  1. ARTIFICIAL TEARS [Concomitant]
     Active Substance: GLYCERIN\HYPROMELLOSES\POLYETHYLENE GLYCOL 400
     Indication: PRODUCT USED FOR UNKNOWN INDICATION
     Route: 065
  2. VOTRIENT [Suspect]
     Active Substance: PAZOPANIB HYDROCHLORIDE
     Dosage: 200 MG, QD
     Route: 048
  3. SERETIDE [Concomitant]
     Active Substance: FLUTICASONE PROPIONATE\SALMETEROL XINAFOATE
     Indication: ASTHMA
     Dosage: 1 DF, Q12H (1 PUFF OF 500 MCG/ 50 UG)
     Route: 055
  4. CLOTRIMAZOLE. [Concomitant]
     Active Substance: CLOTRIMAZOLE
     Indication: PRODUCT USED FOR UNKNOWN INDICATION
     Route: 065
  5. HYDROCORTISONE. [Concomitant]
     Active Substance: HYDROCORTISONE
     Indication: PRODUCT USED FOR UNKNOWN INDICATION
     Route: 065
  6. ATORVASTATIN [Suspect]
     Active Substance: ATORVASTATIN
     Indication: PRODUCT USED FOR UNKNOWN INDICATION
     Dosage: UNK
     Route: 065
  7. ACETYLSALICYLIC ACID [Suspect]
     Active Substance: ASPIRIN
     Indication: PRODUCT USED FOR UNKNOWN INDICATION
     Dosage: UNK
     Route: 065
  8. AFRISAL [Concomitant]
     Indication: PRODUCT USED FOR UNKNOWN INDICATION
     Route: 065
  9. BETAMETHASONE. [Concomitant]
     Active Substance: BETAMETHASONE
     Indication: PRODUCT USED FOR UNKNOWN INDICATION
     Route: 065
  10. THIAMINE. [Concomitant]
     Active Substance: THIAMINE
     Indication: PRODUCT USED FOR UNKNOWN INDICATION
     Dosage: 300 MG, Q12H
     Route: 048
  11. VOTRIENT [Suspect]
     Active Substance: PAZOPANIB HYDROCHLORIDE
     Dosage: 200 MG, Q12H
     Route: 048
     Dates: start: 20160102
  12. VOTRIENT [Suspect]
     Active Substance: PAZOPANIB HYDROCHLORIDE
     Dosage: 400 MG, QD (1 TABLET OF 400 MG DAILY TO REDUCE THE EVENT)
     Route: 048
  13. CROTAMITON [Concomitant]
     Active Substance: CROTAMITON
     Indication: RASH
     Route: 065
  14. VOTRIENT [Suspect]
     Active Substance: PAZOPANIB HYDROCHLORIDE
     Indication: RENAL CELL CARCINOMA
     Dosage: 200 MG, TID
     Route: 048
     Dates: start: 20150102
  15. METHOCARBAMOL. [Concomitant]
     Active Substance: METHOCARBAMOL
     Indication: BACK PAIN
     Dosage: 750 MG, Q12H
     Route: 048

REACTIONS (22)
  - Pruritus [Unknown]
  - Pain in extremity [Unknown]
  - Fatigue [Unknown]
  - Eye pruritus [Unknown]
  - Malaise [Unknown]
  - Headache [Unknown]
  - Foreign body in respiratory tract [Unknown]
  - Cataract [Unknown]
  - Arthralgia [Unknown]
  - Abdominal pain upper [Unknown]
  - General physical health deterioration [Unknown]
  - Rash [Unknown]
  - Diarrhoea [Unknown]
  - Poisoning [Unknown]
  - Renal cell carcinoma [Unknown]
  - Gastrointestinal disorder [Unknown]
  - Rash generalised [Unknown]
  - Malignant neoplasm progression [Unknown]
  - Nasal discomfort [Unknown]
  - Sinusitis [Unknown]
  - Discomfort [Unknown]
  - Skin papilloma [Unknown]

NARRATIVE: CASE EVENT DATE: 20150108
